FAERS Safety Report 5927494-4 (Version None)
Quarter: 2008Q4

REPORT INFORMATION
  Report Type: 
  Country: None (occurrence: None)
  Receive Date: 20081022
  Receipt Date: 20081022
  Transmission Date: 20090506
  Serious: No
  Sender: FDA-Public Use
  Company Number: None

PATIENT

DRUGS (1)
  1. HALOPERIDOL [Suspect]

REACTIONS (30)
  - AKATHISIA [None]
  - AZOTAEMIA [None]
  - BLOOD ELECTROLYTES ABNORMAL [None]
  - BLOOD GASES ABNORMAL [None]
  - BODY TEMPERATURE INCREASED [None]
  - CARDIAC FAILURE [None]
  - CONFUSIONAL STATE [None]
  - CONTRAINDICATION TO MEDICAL TREATMENT [None]
  - DRUG ABUSE [None]
  - DRUG ADMINISTRATION ERROR [None]
  - HEPATIC FAILURE [None]
  - HEPATOTOXICITY [None]
  - HYPERKALAEMIA [None]
  - HYPONATRAEMIA [None]
  - INCORRECT DOSE ADMINISTERED [None]
  - INSOMNIA [None]
  - LEUKOCYTOSIS [None]
  - MALAISE [None]
  - MENTAL STATUS CHANGES [None]
  - MOVEMENT DISORDER [None]
  - MYOCLONUS [None]
  - NEUROGENIC BLADDER [None]
  - OXYGEN SATURATION DECREASED [None]
  - PARKINSONISM [None]
  - PNEUMONIA [None]
  - RENAL FAILURE [None]
  - SEPSIS [None]
  - TARDIVE DYSKINESIA [None]
  - URINARY TRACT INFECTION [None]
  - URINE COLOUR ABNORMAL [None]
